FAERS Safety Report 7970491-8 (Version None)
Quarter: 2011Q4

REPORT INFORMATION
  Report Type: 
  Country: None (occurrence: None)
  Receive Date: 20111212
  Receipt Date: 20111207
  Transmission Date: 20120403
  Serious: No
  Sender: FDA-Public Use
  Company Number: PHHY2010JP52187

PATIENT
  Sex: Male

DRUGS (17)
  1. PLATIBIT [Concomitant]
     Dosage: 0.2 UG, UNK
     Route: 048
     Dates: start: 20090902
  2. CONIEL [Concomitant]
     Dosage: 4 MG, UNK
     Route: 048
     Dates: start: 20090902
  3. KREMEZIN [Concomitant]
     Dosage: 6 G, UNK
     Route: 048
     Dates: start: 20090901
  4. SODIUM BICARBONATE [Concomitant]
     Dosage: 3 G, UNK
     Route: 048
     Dates: start: 20090902
  5. EPINASTINE HYDROCHLORIDE [Concomitant]
     Dosage: 20 MG, UNK
     Route: 048
     Dates: start: 20100317
  6. ALLOPURINOL [Concomitant]
     Dosage: 200 MG, UNK
     Route: 048
     Dates: start: 20090902, end: 20100316
  7. HIRUDOID [Concomitant]
     Indication: PROPHYLAXIS
     Dosage: UNK
     Dates: start: 20091221
  8. ANTEBATE [Concomitant]
     Dosage: UNK
     Dates: start: 20091221
  9. GLYMESASON [Concomitant]
     Indication: PROPHYLAXIS
     Dosage: UNK
     Dates: start: 20091221
  10. MUCOSTA [Concomitant]
     Dosage: 100 MG, UNK
     Route: 048
     Dates: start: 20100419
  11. KALIMATE [Concomitant]
     Dosage: 15 G, UNK
     Route: 048
     Dates: start: 20090902
  12. LIVALO [Concomitant]
     Dosage: 2 MG, UNK
     Route: 048
     Dates: start: 20090902
  13. ALLOPURINOL [Concomitant]
     Dosage: 200 MG, UNK
     Route: 048
     Dates: start: 20100317
  14. LOXONIN [Concomitant]
     Indication: PAIN
     Dosage: 60 MG, UNK
     Route: 048
     Dates: start: 20100419
  15. TASIGNA [Suspect]
     Indication: CHRONIC MYELOID LEUKAEMIA
     Dosage: 400 MG, UNK
     Route: 048
     Dates: start: 20091111
  16. FLOMOX [Concomitant]
     Indication: PROPHYLAXIS
     Dosage: 100 MG, UNK
     Route: 048
     Dates: start: 20100419
  17. TALION [Concomitant]
     Dosage: 20 MG, UNK
     Route: 048
     Dates: start: 20100524

REACTIONS (5)
  - BLOOD CREATININE INCREASED [None]
  - ANAEMIA [None]
  - LIPASE INCREASED [None]
  - BLOOD POTASSIUM DECREASED [None]
  - BLOOD UREA INCREASED [None]
